FAERS Safety Report 8106357-2 (Version None)
Quarter: 2012Q1

REPORT INFORMATION
  Report Type: 
  Country: None (occurrence: None)
  Receive Date: 20120202
  Receipt Date: 20120126
  Transmission Date: 20120608
  Serious: Yes (Other)
  Sender: FDA-Public Use
  Company Number: US-CELGENEUS-163-21880-11120301

PATIENT
  Sex: Male
  Weight: 68.1 kg

DRUGS (6)
  1. REVLIMID [Suspect]
     Indication: MYELOFIBROSIS
     Dosage: 5 MILLIGRAM
     Route: 048
     Dates: start: 20110723
  2. DEXAMETHASONE [Suspect]
     Route: 065
  3. STEROIDS [Concomitant]
     Route: 065
  4. REVLIMID [Suspect]
     Dosage: 5 MILLIGRAM
     Route: 048
     Dates: start: 20111121
  5. REGULAR INSULIN [Concomitant]
     Indication: DIABETES MELLITUS
     Route: 065
  6. BLOOD TRANSFUSION [Concomitant]
     Dosage: 2 PINTS
     Route: 065

REACTIONS (1)
  - BLOOD GLUCOSE INCREASED [None]
